FAERS Safety Report 20306413 (Version 1)
Quarter: 2022Q1

REPORT INFORMATION
  Report Type: Spontaneous
  Country: US (occurrence: US)
  Receive Date: 20220106
  Receipt Date: 20220106
  Transmission Date: 20220423
  Serious: Yes (Other)
  Sender: FDA-Public Use
  Company Number: US-CELGENE-USA-20220100593

PATIENT
  Age: 42 Year
  Sex: Female

DRUGS (1)
  1. REVLIMID [Suspect]
     Active Substance: LENALIDOMIDE
     Indication: Neoplasm
     Dosage: 10 MILLIGRAM
     Route: 048
     Dates: start: 202201

REACTIONS (1)
  - POEMS syndrome [Unknown]

NARRATIVE: CASE EVENT DATE: 20220103
